FAERS Safety Report 5694459-X (Version None)
Quarter: 2008Q2

REPORT INFORMATION
  Report Type: 
  Country: None (occurrence: None)
  Receive Date: 20080404
  Receipt Date: 20080331
  Transmission Date: 20081010
  Serious: Yes (Death, Hospitalization, Other)
  Sender: FDA-Public Use
  Company Number: BE-BRISTOL-MYERS SQUIBB COMPANY-14126262

PATIENT
  Age: 53 Year
  Sex: Male

DRUGS (1)
  1. CEFEPIME [Suspect]
     Indication: SEPSIS

REACTIONS (3)
  - APHASIA [None]
  - COMA [None]
  - MYOCARDIAL INFARCTION [None]
